FAERS Safety Report 12784404 (Version 1)
Quarter: 2016Q3

REPORT INFORMATION
  Report Type: Spontaneous
  Country: CA (occurrence: CA)
  Receive Date: 20160927
  Receipt Date: 20160927
  Transmission Date: 20161109
  Serious: Yes (Hospitalization, Other)
  Sender: FDA-Public Use
  Company Number: CA-BEH-2012033909

PATIENT
  Age: 30 Year
  Sex: Female
  Weight: 45 kg

DRUGS (5)
  1. PRIVIGEN [Suspect]
     Active Substance: HUMAN IMMUNOGLOBULIN G
     Dosage: 5 GM OVER 2 DAYS
     Route: 042
     Dates: start: 20120818, end: 20120819
  2. ORAL CONTRACEPTIVE PILL [Concomitant]
     Active Substance: UNSPECIFIED INGREDIENT
  3. PRIVIGEN [Suspect]
     Active Substance: HUMAN IMMUNOGLOBULIN G
     Dosage: 5 GM OVER 2 DAYS
     Route: 042
     Dates: start: 20120818, end: 20120819
  4. TYLENOL #2 [Concomitant]
     Dates: start: 20120813, end: 20120820
  5. PRIVIGEN [Suspect]
     Active Substance: HUMAN IMMUNOGLOBULIN G
     Indication: MILLER FISHER SYNDROME
     Dosage: 20 GM OVER 2 DAYS
     Route: 042
     Dates: start: 20120818, end: 20120819

REACTIONS (9)
  - Coombs direct test positive [Unknown]
  - Haemolysis [Unknown]
  - Nausea [Recovered/Resolved]
  - Haematuria [Recovered/Resolved]
  - Guillain-Barre syndrome [Unknown]
  - Vomiting [Recovered/Resolved]
  - Haemoglobinuria [Unknown]
  - Headache [Recovered/Resolved]
  - Anti-erythrocyte antibody positive [Unknown]

NARRATIVE: CASE EVENT DATE: 20120821
